FAERS Safety Report 6016627-X (Version None)
Quarter: 2008Q4

REPORT INFORMATION
  Report Type: 
  Country: None (occurrence: None)
  Receive Date: 20081218
  Receipt Date: 20081204
  Transmission Date: 20090506
  Serious: Yes (Death)
  Sender: FDA-Public Use
  Company Number: 2008003181

PATIENT
  Sex: 0

DRUGS (1)
  1. ERLOTINIB (ERLOTINIB) (TABLET) (ERLOTINIB) [Suspect]
     Dosage: 150 MG, QD, ORAL
     Route: 048
     Dates: start: 20081109, end: 20081112

REACTIONS (2)
  - MALIGNANT NEOPLASM PROGRESSION [None]
  - RESPIRATORY FAILURE [None]
